FAERS Safety Report 25173611 (Version 1)
Quarter: 2025Q2

REPORT INFORMATION
  Report Type: Spontaneous
  Country: US (occurrence: US)
  Receive Date: 20250408
  Receipt Date: 20250408
  Transmission Date: 20250717
  Serious: Yes (Life-Threatening, Other)
  Sender: SANOFI AVENTIS
  Company Number: US-SA-2025SA100446

PATIENT
  Sex: Female

DRUGS (3)
  1. CLOPIDOGREL BISULFATE [Suspect]
     Active Substance: CLOPIDOGREL BISULFATE
  2. WARFARIN [Concomitant]
     Active Substance: WARFARIN
     Indication: Thrombosis prophylaxis
  3. WARFARIN [Concomitant]
     Active Substance: WARFARIN
     Indication: Device related thrombosis

REACTIONS (1)
  - Left ventricle outflow tract obstruction [Unknown]
